FAERS Safety Report 16112616 (Version 1)
Quarter: 2019Q1

REPORT INFORMATION
  Report Type: Spontaneous
  Country: FR (occurrence: FR)
  Receive Date: 20190325
  Receipt Date: 20190325
  Transmission Date: 20190418
  Serious: Yes (Hospitalization)
  Sender: FDA-Public Use
  Company Number: FR-ELI_LILLY_AND_COMPANY-FR201903008213

PATIENT
  Age: 64 Year
  Sex: Male
  Weight: 59 kg

DRUGS (7)
  1. APIXABAN [Concomitant]
     Active Substance: APIXABAN
  2. AMLODIPINE [Concomitant]
     Active Substance: AMLODIPINE BESYLATE
  3. SPECIAFOLDINE [Concomitant]
     Active Substance: FOLIC ACID
  4. METOCLOPRAMIDE. [Concomitant]
     Active Substance: METOCLOPRAMIDE
  5. ALIMTA [Suspect]
     Active Substance: PEMETREXED DISODIUM
     Indication: LUNG NEOPLASM MALIGNANT
     Dosage: UNK UNK, UNKNOWN
     Route: 065
     Dates: start: 20190204, end: 20190204
  6. ARANESP [Concomitant]
     Active Substance: DARBEPOETIN ALFA
  7. TRAMADOL. [Concomitant]
     Active Substance: TRAMADOL

REACTIONS (4)
  - Rash [Recovered/Resolved]
  - Pruritus [Recovered/Resolved]
  - Neutropenia [Recovered/Resolved]
  - Cholestasis [Recovering/Resolving]

NARRATIVE: CASE EVENT DATE: 20190211
